FAERS Safety Report 18432327 (Version 3)
Quarter: 2020Q4

REPORT INFORMATION
  Report Type: Report from Study
  Country: US (occurrence: US)
  Receive Date: 20201027
  Receipt Date: 20201229
  Transmission Date: 20210114
  Serious: Yes (Hospitalization, Other)
  Sender: FDA-Public Use
  Company Number: NVSC2020US281413

PATIENT
  Age: 65 Year
  Sex: Female

DRUGS (2)
  1. XGEVA [Concomitant]
     Active Substance: DENOSUMAB
     Indication: PRODUCT USED FOR UNKNOWN INDICATION
     Dosage: UNK
     Route: 065
  2. PIQRAY [Suspect]
     Active Substance: ALPELISIB
     Indication: PRODUCT USED FOR UNKNOWN INDICATION
     Dosage: UNK
     Route: 048

REACTIONS (16)
  - Abdominal abscess [Unknown]
  - Hyperglycaemia [Unknown]
  - Muscular weakness [Unknown]
  - Dehydration [Unknown]
  - Breast abscess [Unknown]
  - Gait disturbance [Unknown]
  - Neutrophil count increased [Unknown]
  - Weight decreased [Unknown]
  - Incontinence [Unknown]
  - Breast pain [Unknown]
  - Decreased appetite [Unknown]
  - Vomiting [Unknown]
  - Blood creatinine increased [Unknown]
  - Bone pain [Unknown]
  - Asthenia [Unknown]
  - Breast tenderness [Unknown]

NARRATIVE: CASE EVENT DATE: 20201031
